FAERS Safety Report 6626453-6 (Version None)
Quarter: 2010Q1

REPORT INFORMATION
  Report Type: 
  Country: None (occurrence: None)
  Receive Date: 20100310
  Receipt Date: 20091202
  Transmission Date: 20100710
  Serious: No
  Sender: FDA-Public Use
  Company Number: US-ABBOTT-09P-163-0613038-00

PATIENT
  Sex: Female

DRUGS (3)
  1. LUPRON DEPOT [Suspect]
     Indication: UTERINE LEIOMYOMA
     Dosage: MONTHLY DOSE
     Dates: start: 20090820, end: 20091019
  2. SYNTHROID [Concomitant]
     Indication: HYPOTHYROIDISM
     Dates: start: 19930101
  3. PROVENTIL [Concomitant]
     Indication: ASTHMA

REACTIONS (3)
  - MENORRHAGIA [None]
  - METRORRHAGIA [None]
  - THROMBOSIS [None]
